FAERS Safety Report 18634345 (Version 1)
Quarter: 2020Q4

REPORT INFORMATION
  Report Type: Spontaneous
  Country: US (occurrence: US)
  Receive Date: 20201218
  Receipt Date: 20201218
  Transmission Date: 20210114
  Serious: Yes (Other)
  Sender: FDA-Public Use
  Company Number: None

PATIENT
  Age: 70 Year
  Sex: Male
  Weight: 103 kg

DRUGS (12)
  1. ASPIRIN. [Concomitant]
     Active Substance: ASPIRIN
  2. FLUTICASONE NASAL SPRAY [Concomitant]
     Active Substance: FLUTICASONE
  3. CARVEDILOL. [Concomitant]
     Active Substance: CARVEDILOL
  4. LORATADINE. [Concomitant]
     Active Substance: LORATADINE
  5. FLUTICASONE NASAL SPRAY [Concomitant]
     Active Substance: FLUTICASONE
  6. BAMLANIVIMAB. [Suspect]
     Active Substance: BAMLANIVIMAB
     Indication: COVID-19
     Dosage: ?          OTHER FREQUENCY:ONCE;?
     Route: 040
     Dates: start: 20201213, end: 20201213
  7. ATORVASTATIN [Concomitant]
     Active Substance: ATORVASTATIN
  8. OMEPRAZOLE. [Concomitant]
     Active Substance: OMEPRAZOLE
  9. MULTIVITAMIN [Concomitant]
     Active Substance: VITAMINS
  10. GLUCOSAMINE [Concomitant]
     Active Substance: GLUCOSAMINE
  11. CALCIUM/VITAMIN D [Concomitant]
     Active Substance: CALCIUM\VITAMIN D
  12. COENZYME Q10 [Concomitant]
     Active Substance: DIETARY SUPPLEMENT\UBIDECARENONE

REACTIONS (4)
  - Chest pain [None]
  - Heart rate increased [None]
  - Body temperature increased [None]
  - Infusion related reaction [None]

NARRATIVE: CASE EVENT DATE: 20201213
